FAERS Safety Report 5833231-4 (Version None)
Quarter: 2008Q3

REPORT INFORMATION
  Report Type: 
  Country: None (occurrence: None)
  Receive Date: 20080805
  Receipt Date: 20080801
  Transmission Date: 20090109
  Serious: Yes (Other)
  Sender: FDA-Public Use
  Company Number: GR-BRISTOL-MYERS SQUIBB COMPANY-14279517

PATIENT
  Age: 47 Year
  Sex: Male

DRUGS (5)
  1. CYCLOPHOSPHAMIDE [Suspect]
     Indication: NON-HODGKIN'S LYMPHOMA
     Dosage: 750MG/M2 DAY1
     Dates: start: 20050101
  2. VINCRISTINE SULFATE [Suspect]
     Indication: NON-HODGKIN'S LYMPHOMA
     Dosage: 2MG DAY1
     Dates: start: 20050101
  3. DOXORUBICIN HCL [Suspect]
     Indication: NON-HODGKIN'S LYMPHOMA
     Dosage: 30MG/M2 DAY1
     Dates: start: 20050101
  4. RITUXIMAB [Suspect]
     Indication: NON-HODGKIN'S LYMPHOMA
     Dosage: 375 MG/M2 DAY1
     Dates: start: 20050101
  5. PREDNISONE [Suspect]
     Indication: NON-HODGKIN'S LYMPHOMA
     Dosage: 100MG DAY1-5
     Dates: start: 20050101

REACTIONS (2)
  - ACUTE MYOCARDIAL INFARCTION [None]
  - HEPATITIS C [None]
